FAERS Safety Report 19979942 (Version 1)
Quarter: 2021Q4

REPORT INFORMATION
  Report Type: Spontaneous
  Country: US (occurrence: US)
  Receive Date: 20211021
  Receipt Date: 20211021
  Transmission Date: 20220303
  Serious: Yes (Other)
  Sender: FDA-Public Use
  Company Number: US-MYLANLABS-2021M1073825

PATIENT
  Age: 66 Year
  Sex: Female

DRUGS (31)
  1. METOPROLOL [Interacting]
     Active Substance: METOPROLOL
     Indication: Hypertension
     Dosage: 100 MILLIGRAM, BID
     Route: 048
  2. METOPROLOL [Interacting]
     Active Substance: METOPROLOL
     Indication: Cardiac failure
  3. ACETAMINOPHEN\HYDROCODONE [Interacting]
     Active Substance: ACETAMINOPHEN\HYDROCODONE
     Indication: Pain
     Dosage: UNK, QID (FOUR TIMES DAILY AS NEEDED FOR PAIN)
     Route: 048
  4. ACETAMINOPHEN\HYDROCODONE [Interacting]
     Active Substance: ACETAMINOPHEN\HYDROCODONE
     Indication: Cardiac failure
  5. DULOXETINE [Interacting]
     Active Substance: DULOXETINE
     Indication: Major depression
     Dosage: 30 MILLIGRAM, BID
     Route: 048
  6. ACETAMINOPHEN [Concomitant]
     Active Substance: ACETAMINOPHEN
     Indication: Pain
     Dosage: 650 MILLIGRAM, TID (THREE TIMES DAILY AS NEEDED FOR PAIN)
     Route: 048
  7. GABAPENTIN [Concomitant]
     Active Substance: GABAPENTIN
     Indication: Pain
     Dosage: 600 MILLIGRAM, TID
     Route: 048
  8. DICLOFENAC [Concomitant]
     Active Substance: DICLOFENAC
     Indication: Pain
     Dosage: 2 GRAM, QID (FOUR TIMES DAILY AS NEEDED FOR PAIN)
     Route: 061
  9. LIDOCAINE [Concomitant]
     Active Substance: LIDOCAINE
     Indication: Pain
     Dosage: 1 DOSAGE FORM, QD
     Route: 061
  10. AMLODIPINE [Concomitant]
     Active Substance: AMLODIPINE BESYLATE
     Indication: Hypertension
     Dosage: 5 MILLIGRAM, QD
     Route: 048
  11. AMLODIPINE [Concomitant]
     Active Substance: AMLODIPINE BESYLATE
     Indication: Cardiac failure
  12. VALSARTAN [Concomitant]
     Active Substance: VALSARTAN
     Indication: Hypertension
     Dosage: 320 MILLIGRAM, QD
     Route: 048
  13. VALSARTAN [Concomitant]
     Active Substance: VALSARTAN
     Indication: Cardiac failure
  14. CLONIDINE [Concomitant]
     Active Substance: CLONIDINE
     Indication: Hypertension
     Dosage: 0.1 MILLIGRAM, QD
     Route: 048
  15. CLONIDINE [Concomitant]
     Active Substance: CLONIDINE
     Indication: Cardiac failure
  16. FUROSEMIDE [Concomitant]
     Active Substance: FUROSEMIDE
     Indication: Hypertension
     Dosage: 40 MILLIGRAM, QD
     Route: 048
  17. FUROSEMIDE [Concomitant]
     Active Substance: FUROSEMIDE
     Indication: Cardiac failure
  18. APIXABAN [Concomitant]
     Active Substance: APIXABAN
     Indication: Atrial fibrillation
     Dosage: 5 MILLIGRAM, BID
     Route: 048
  19. DRONEDARONE [Concomitant]
     Active Substance: DRONEDARONE
     Indication: Atrial fibrillation
     Dosage: 400 MILLIGRAM, BID
     Route: 048
  20. ALLOPURINOL [Concomitant]
     Active Substance: ALLOPURINOL
     Indication: Gout
     Dosage: 300 MILLIGRAM, QD
     Route: 048
  21. LEVOTHYROXINE [Concomitant]
     Active Substance: LEVOTHYROXINE
     Indication: Hypothyroidism
     Dosage: 88 MICROGRAM, QD
     Route: 048
  22. INSULIN ASPART [Concomitant]
     Active Substance: INSULIN ASPART
     Indication: Type 2 diabetes mellitus
     Dosage: 26 DOSAGE FORM, TID (26 UNITS; THREE TIMES DAILY BEFORE MEALS )
     Route: 058
  23. INSULIN GLARGINE [Concomitant]
     Active Substance: INSULIN GLARGINE
     Indication: Type 2 diabetes mellitus
     Dosage: 20 DOSAGE FORM, QD
     Route: 058
  24. PANTOPRAZOLE [Concomitant]
     Active Substance: PANTOPRAZOLE
     Indication: Gastrooesophageal reflux disease
     Dosage: 40 MILLIGRAM, QD
     Route: 048
  25. MELATONIN [Concomitant]
     Active Substance: MELATONIN
     Indication: Insomnia
     Dosage: 5 MILLIGRAM, QD
     Route: 048
  26. LOPERAMIDE [Concomitant]
     Active Substance: LOPERAMIDE
     Indication: Diarrhoea
     Dosage: 2 MILLIGRAM, QID (FOUR TIMES DAILY AS NEEDED)
     Route: 048
  27. ONDANSETRON [Concomitant]
     Active Substance: ONDANSETRON
     Indication: Nausea
     Dosage: 4 MILLIGRAM, BID (FOUR TIMES DAILY AS NEEDED)
     Route: 048
  28. NYSTATIN [Concomitant]
     Active Substance: NYSTATIN
     Indication: Candida infection
     Dosage: UNK UNK, QID (10000 UNIT/GRAM; FOUR TIMES DAILY AS NEEDED)
     Route: 048
  29. CALCITRIOL [Concomitant]
     Active Substance: CALCITRIOL
     Indication: Vitamin supplementation
     Dosage: 0.25 MICROGRAM, QD
     Route: 048
  30. CHOLECALCIFEROL [Concomitant]
     Active Substance: CHOLECALCIFEROL
     Indication: Vitamin supplementation
     Dosage: 2000 DOSAGE FORM, QD
     Route: 048
  31. IRON AND VITAMIN C [Concomitant]
     Indication: Supplementation therapy
     Dosage: UNK UNK, QD
     Route: 048

REACTIONS (5)
  - Cytogenetic analysis abnormal [Recovering/Resolving]
  - Drug interaction [Recovering/Resolving]
  - CYP2D6 gene status assay [Recovering/Resolving]
  - Bradycardia [Recovering/Resolving]
  - Therapeutic product effect increased [Recovering/Resolving]
